FAERS Safety Report 23351140 (Version 2)
Quarter: 2024Q1

REPORT INFORMATION
  Report Type: Spontaneous
  Country: FR (occurrence: FR)
  Receive Date: 20231229
  Receipt Date: 20240105
  Transmission Date: 20240410
  Serious: Yes (Life-Threatening, Hospitalization, Other)
  Sender: FDA-Public Use
  Company Number: None

PATIENT
  Age: 60 Year
  Sex: Male
  Weight: 100 kg

DRUGS (11)
  1. VENETOCLAX [Suspect]
     Active Substance: VENETOCLAX
     Indication: Chronic lymphocytic leukaemia
     Dosage: 400 MILLIGRAM
     Route: 048
     Dates: start: 20220201, end: 20220224
  2. VENETOCLAX [Suspect]
     Active Substance: VENETOCLAX
     Indication: Chronic lymphocytic leukaemia
     Dosage: 50 MILLIGRAM
     Route: 048
     Dates: start: 20220111, end: 20220117
  3. VENETOCLAX [Suspect]
     Active Substance: VENETOCLAX
     Indication: Chronic lymphocytic leukaemia
     Dosage: 20 MILLIGRAM
     Route: 048
     Dates: start: 20220104, end: 20220110
  4. VENETOCLAX [Suspect]
     Active Substance: VENETOCLAX
     Indication: Chronic lymphocytic leukaemia
     Dosage: 200 MILLIGRAM
     Route: 048
     Dates: start: 20220125, end: 20220131
  5. VENETOCLAX [Suspect]
     Active Substance: VENETOCLAX
     Indication: Chronic lymphocytic leukaemia
     Dosage: 100 MILLIGRAM
     Route: 048
     Dates: start: 20220118, end: 20220124
  6. RITUXIMAB [Suspect]
     Active Substance: RITUXIMAB
     Indication: Chronic lymphocytic leukaemia
     Dosage: DOSE TOTALE S?PAR?E EN 2 PERFUSIONS R?ALIS?ES ? 24H D^INTERVALLE?FIRST INFUSION: 50% OF THE THEOR...
     Route: 042
     Dates: start: 20220209, end: 20220209
  7. RITUXIMAB [Suspect]
     Active Substance: RITUXIMAB
     Indication: Chronic lymphocytic leukaemia
     Dosage: SECOND INFUSION: 50% OF THE THEORETICAL DOSE OF 250 MG/M2
     Route: 042
     Dates: start: 20220210, end: 20220210
  8. XARELTO [Concomitant]
     Active Substance: RIVAROXABAN
     Indication: Product used for unknown indication
  9. SPIRIVA [Concomitant]
     Active Substance: TIOTROPIUM BROMIDE MONOHYDRATE
     Indication: Product used for unknown indication
  10. FLUTICASONE FUROATE\VILANTEROL TRIFENATATE [Concomitant]
     Active Substance: FLUTICASONE FUROATE\VILANTEROL TRIFENATATE
     Indication: Product used for unknown indication
     Dosage: 92/22 UG
  11. ALBUTEROL [Concomitant]
     Active Substance: ALBUTEROL
     Indication: Product used for unknown indication

REACTIONS (44)
  - Acute respiratory distress syndrome [Recovered/Resolved with Sequelae]
  - COVID-19 [Recovered/Resolved with Sequelae]
  - Respiratory disorder [Unknown]
  - SARS-CoV-2 test positive [Recovered/Resolved]
  - Dyspnoea [Recovered/Resolved]
  - Acute respiratory distress syndrome [Unknown]
  - Neutropenia [Recovered/Resolved]
  - Chest discomfort [Unknown]
  - Bronchiectasis [Unknown]
  - Restrictive pulmonary disease [Unknown]
  - Chronic lymphocytic leukaemia recurrent [Unknown]
  - Pyrexia [Recovered/Resolved]
  - Pneumothorax [Unknown]
  - Abscess [Recovered/Resolved]
  - Fibrosis [Unknown]
  - Diarrhoea [Unknown]
  - Hypoxia [Unknown]
  - COVID-19 [Recovered/Resolved]
  - Cough [Recovered/Resolved]
  - Immunosuppression [Unknown]
  - Traumatic lung injury [Unknown]
  - Lung infiltration [Recovering/Resolving]
  - Neutropenia [Unknown]
  - Cough [Unknown]
  - Renal failure [Unknown]
  - Pneumothorax [Recovered/Resolved]
  - Pancytopenia [Unknown]
  - Pyrexia [Unknown]
  - Bronchitis [Unknown]
  - Hypoxia [Recovered/Resolved]
  - Pleural effusion [Unknown]
  - Septic shock [Unknown]
  - Dyspnoea exertional [Not Recovered/Not Resolved]
  - Oxygen saturation decreased [Unknown]
  - Pseudomonas test positive [Unknown]
  - Productive cough [Recovered/Resolved]
  - Respiratory syncytial virus infection [Unknown]
  - Lung disorder [Unknown]
  - Pyrexia [Unknown]
  - Haemodynamic instability [Unknown]
  - Aspergillus test positive [Unknown]
  - Interstitial lung disease [Unknown]
  - Hyperthermia [Unknown]
  - Lung disorder [Recovering/Resolving]

NARRATIVE: CASE EVENT DATE: 20220101
